FAERS Safety Report 6552124-0 (Version None)
Quarter: 2010Q1

REPORT INFORMATION
  Report Type: 
  Country: None (occurrence: None)
  Receive Date: 20100121
  Receipt Date: 20100108
  Transmission Date: 20100710
  Serious: Yes (Other)
  Sender: FDA-Public Use
  Company Number: AVE_01392_2010

PATIENT
  Sex: Female
  Weight: 63.5036 kg

DRUGS (5)
  1. CLONIDINE [Suspect]
     Indication: HYPERTENSION
     Dosage: (0.1 MG QD, VIA A 1/WEEKLY PATCH TOPICAL), (0.2 MG QD, VIA A 1/WEEKLY PATCH TOPICAL)
     Route: 061
     Dates: start: 20091101, end: 20091210
  2. CLONIDINE [Suspect]
     Indication: HYPERTENSION
     Dosage: (0.1 MG QD, VIA A 1/WEEKLY PATCH TOPICAL), (0.2 MG QD, VIA A 1/WEEKLY PATCH TOPICAL)
     Route: 061
     Dates: start: 20091210
  3. BYSTOLIC [Suspect]
     Indication: HYPERTENSION
     Dosage: (5 MG QD ORAL)
     Route: 048
     Dates: start: 20091101
  4. SYNTHROID [Concomitant]
  5. VERAPAMIL [Concomitant]

REACTIONS (5)
  - ANXIETY [None]
  - DRUG INEFFECTIVE [None]
  - ENZYME ABNORMALITY [None]
  - ERYTHEMA [None]
  - HYPERTENSIVE CRISIS [None]
